FAERS Safety Report 18981283 (Version 1)
Quarter: 2021Q1

REPORT INFORMATION
  Report Type: Spontaneous
  Country: US (occurrence: US)
  Receive Date: 20210308
  Receipt Date: 20210308
  Transmission Date: 20210420
  Serious: Yes (Death)
  Sender: FDA-Public Use
  Company Number: None

PATIENT
  Age: 71 Year
  Sex: Female
  Weight: 62.1 kg

DRUGS (11)
  1. METOPROLOL SUCCINATE ER 25 MG TAB [Suspect]
     Active Substance: METOPROLOL SUCCINATE
     Indication: TACHYCARDIA
     Dosage: ?          QUANTITY:1 TABLET(S);?
     Route: 048
     Dates: start: 20210128, end: 20210211
  2. HOYER LIFT [Concomitant]
  3. METOPROLOL SUCCINATE ER 25 MG TAB [Suspect]
     Active Substance: METOPROLOL SUCCINATE
     Indication: HYPERTENSION
     Dosage: ?          QUANTITY:1 TABLET(S);?
     Route: 048
     Dates: start: 20210128, end: 20210211
  4. D [Concomitant]
  5. MECLIZINE [Concomitant]
     Active Substance: MECLIZINE HYDROCHLORIDE
  6. FLUCONAZOLE. [Concomitant]
     Active Substance: FLUCONAZOLE
  7. MG [Concomitant]
     Active Substance: MAGNESIUM
  8. CALCIUM [Concomitant]
     Active Substance: CALCIUM
  9. AMLODIPINE [Concomitant]
     Active Substance: AMLODIPINE BESYLATE
  10. SENNA TABLET [Concomitant]
  11. MIRALAX [Concomitant]
     Active Substance: POLYETHYLENE GLYCOL 3350

REACTIONS (6)
  - Swelling face [None]
  - Pruritus [None]
  - Cardiac arrest [None]
  - Heart rate increased [None]
  - Cardiac failure [None]
  - Rash [None]

NARRATIVE: CASE EVENT DATE: 20210215
